FAERS Safety Report 8664567 (Version 4)
Quarter: 2016Q4

REPORT INFORMATION
  Report Type: Report from Study
  Country: FR (occurrence: FR)
  Receive Date: 20120713
  Receipt Date: 20161104
  Transmission Date: 20170207
  Serious: Yes (Other)
  Sender: FDA-Public Use
  Company Number: FR-PFIZER INC-2012157620

PATIENT
  Age: 44 Year
  Sex: Female

DRUGS (3)
  1. CYTARABINE. [Suspect]
     Active Substance: CYTARABINE
     Indication: ACUTE LEUKAEMIA
     Dosage: 348 MG, 1X/DAY
     Route: 042
     Dates: start: 20080722, end: 20080728
  2. CERUBIDIN [Suspect]
     Active Substance: DAUNORUBICIN
     Indication: ACUTE LEUKAEMIA
     Dosage: 104.4 MG, 1X/DAY
     Route: 042
     Dates: start: 20080722, end: 20080724
  3. MYLOTARG [Suspect]
     Active Substance: GEMTUZUMAB OZOGAMICIN
     Indication: ACUTE LEUKAEMIA
     Dosage: 10.4 MG, 1X/DAY
     Route: 042
     Dates: start: 20080725, end: 20080725

REACTIONS (5)
  - Mesenteric panniculitis [Recovered/Resolved]
  - Lung disorder [Recovered/Resolved]
  - Gastrointestinal haemorrhage [Recovered/Resolved]
  - Sepsis [Recovered/Resolved]
  - Febrile bone marrow aplasia [Recovered/Resolved]

NARRATIVE: CASE EVENT DATE: 20080725
